FAERS Safety Report 5714814-9 (Version None)
Quarter: 2008Q2

REPORT INFORMATION
  Report Type: 
  Country: None (occurrence: None)
  Receive Date: 20080421
  Receipt Date: 20080404
  Transmission Date: 20081010
  Serious: Yes (Death, Hospitalization)
  Sender: FDA-Public Use
  Company Number: 2007BI027267

PATIENT
  Age: 85 Year
  Sex: Male

DRUGS (8)
  1. ZEVALIN [Suspect]
     Indication: NON-HODGKIN'S LYMPHOMA
     Dosage: 568 MBQ; 1X; IV
     Route: 042
     Dates: start: 20071115, end: 20071115
  2. RITUXIMAB [Concomitant]
  3. PARACETAMOL [Concomitant]
  4. TAVEGIL [Concomitant]
  5. PREDNISOLONE [Concomitant]
  6. CORTISONE [Concomitant]
  7. ASPIRIN [Concomitant]
  8. RITUXIMAB [Concomitant]

REACTIONS (4)
  - FALL [None]
  - GENERAL PHYSICAL HEALTH DETERIORATION [None]
  - HEPATITIS [None]
  - POST PROCEDURAL HAEMORRHAGE [None]
